FAERS Safety Report 12545145 (Version 1)
Quarter: 2016Q3

REPORT INFORMATION
  Report Type: Report from Study
  Country: NL (occurrence: NL)
  Receive Date: 20160711
  Receipt Date: 20160711
  Transmission Date: 20161109
  Serious: Yes (Hospitalization)
  Sender: FDA-Public Use
  Company Number: NL-BAYER-2015-395835

PATIENT
  Age: 65 Year
  Sex: Female

DRUGS (4)
  1. PRADAXA [Concomitant]
     Active Substance: DABIGATRAN ETEXILATE MESYLATE
  2. BISOPROLOL [Concomitant]
     Active Substance: BISOPROLOL
  3. FLECAINIDE [Concomitant]
     Active Substance: FLECAINIDE
     Dosage: UNK, PRN
  4. BETAFERON [Suspect]
     Active Substance: INTERFERON BETA-1B
     Dosage: UNK
     Dates: start: 1997

REACTIONS (3)
  - Tachyarrhythmia [Recovered/Resolved]
  - Influenza like illness [None]
  - Injection site atrophy [None]

NARRATIVE: CASE EVENT DATE: 20150209
